FAERS Safety Report 19046315 (Version 1)
Quarter: 2021Q1

REPORT INFORMATION
  Report Type: Spontaneous
  Country: ES (occurrence: ES)
  Receive Date: 20210322
  Receipt Date: 20210322
  Transmission Date: 20210420
  Serious: Yes (Other)
  Sender: FDA-Public Use
  Company Number: ES-SA-2021SA095667

PATIENT
  Sex: Male

DRUGS (2)
  1. DUPIXENT [Suspect]
     Active Substance: DUPILUMAB
     Dosage: UNK
  2. CORTICOSTEROID NOS [Suspect]
     Active Substance: CORTICOSTEROID NOS
     Dosage: UNK

REACTIONS (1)
  - Sarcoidosis [Unknown]
